FAERS Safety Report 9850857 (Version 1)
Quarter: 2014Q1

REPORT INFORMATION
  Report Type: Spontaneous
  Country: DE (occurrence: DE)
  Receive Date: 20140128
  Receipt Date: 20140128
  Transmission Date: 20141002
  Serious: Yes (Other)
  Sender: FDA-Public Use
  Company Number: DE-TEVA-458137GER

PATIENT
  Age: 32 Year
  Sex: Female

DRUGS (1)
  1. OXCARBAZEPIN [Suspect]
     Indication: EPILEPSY
     Route: 048
     Dates: start: 20080928, end: 20090513

REACTIONS (1)
  - Premature labour [Unknown]
